FAERS Safety Report 5974072-7 (Version None)
Quarter: 2008Q4

REPORT INFORMATION
  Report Type: 
  Country: None (occurrence: None)
  Receive Date: 20081125
  Receipt Date: 20081106
  Transmission Date: 20090506
  Serious: Yes (Hospitalization)
  Sender: FDA-Public Use
  Company Number: 1000001701

PATIENT
  Age: 44 Year
  Sex: Female

DRUGS (13)
  1. CITALOPRAM HYDROBROMIDE [Suspect]
     Indication: DEPRESSION
     Dosage: 20 MG (20 MG, 1 IN 1 D)
  2. METHYLENE BLUE [Suspect]
     Indication: DIAGNOSTIC PROCEDURE
     Dosage: (560 MG), INTRAVENOUS
     Route: 042
  3. ASPIRIN [Concomitant]
  4. SIMVASTATIN [Concomitant]
  5. ATENOLOL [Concomitant]
  6. ISOSORBIDE MONONITRATE [Concomitant]
  7. BENDROFLUMETHIAZIDE [Suspect]
  8. FELODIPINE [Concomitant]
  9. PROPOFOL [Concomitant]
  10. REMIFENTANIL [Suspect]
  11. ROCURONIUM BROMIDE [Concomitant]
  12. DEXAMETHASONE [Concomitant]
  13. MORPHINE [Concomitant]

REACTIONS (10)
  - AGITATION [None]
  - BLOOD PHOSPHORUS INCREASED [None]
  - DRUG INTERACTION [None]
  - INFLAMMATION [None]
  - MYDRIASIS [None]
  - MYOCLONUS [None]
  - RESTLESSNESS [None]
  - SEROTONIN SYNDROME [None]
  - SPEECH DISORDER [None]
  - STARING [None]
